FAERS Safety Report 10921339 (Version 1)
Quarter: 2015Q1

REPORT INFORMATION
  Report Type: Spontaneous
  Country: JP (occurrence: JP)
  Receive Date: 20150317
  Receipt Date: 20150317
  Transmission Date: 20150721
  Serious: Yes (Other)
  Sender: FDA-Public Use
  Company Number: JP-TEVA-546936ISR

PATIENT
  Age: 52 Year
  Sex: Female

DRUGS (4)
  1. VINCRISTINE [Suspect]
     Active Substance: VINCRISTINE
     Indication: PINEAL PARENCHYMAL NEOPLASM MALIGNANT
     Dosage: 0.6 MG/M2 DAY 1, 8, AND 15; 6 CYCLES
     Route: 065
  2. NIMUSTINE [Suspect]
     Active Substance: NIMUSTINE
     Indication: PINEAL PARENCHYMAL NEOPLASM MALIGNANT
     Dosage: 60 MG/M2 DAY 1; 6 CYCLES
     Route: 065
  3. CARBOPLATIN. [Suspect]
     Active Substance: CARBOPLATIN
     Indication: PINEAL PARENCHYMAL NEOPLASM MALIGNANT
     Dosage: 110 MG/M2 DAY 1; 6 CYCLES
     Route: 065
  4. INTERFERON BETA NOS [Suspect]
     Active Substance: INTERFERON BETA
     Indication: PINEAL PARENCHYMAL NEOPLASM MALIGNANT
     Dosage: 3 X 10E6 IU DAY 1, 8, AND 15; 6 CYCLES
     Route: 065

REACTIONS (4)
  - Growth hormone deficiency [Unknown]
  - Cognitive disorder [Unknown]
  - Hypothyroidism [Unknown]
  - Cerebral disorder [Unknown]
